FAERS Safety Report 4402812-7 (Version None)
Quarter: 2004Q3

REPORT INFORMATION
  Report Type: 
  Country: None (occurrence: None)
  Receive Date: 20040721
  Receipt Date: 20040721
  Transmission Date: 20050211
  Serious: Yes (Other)
  Sender: FDA-Public Use
  Company Number: None

PATIENT
  Age: 10 Month
  Sex: Male

DRUGS (2)
  1. ZANTAC [Suspect]
     Dosage: LIQUID
  2. ZYRTEC [Suspect]
     Dosage: LIQUID

REACTIONS (1)
  - MEDICATION ERROR [None]
